FAERS Safety Report 20910199 (Version 1)
Quarter: 2022Q2

REPORT INFORMATION
  Report Type: Spontaneous
  Country: US (occurrence: None)
  Receive Date: 20220602
  Receipt Date: 20220602
  Transmission Date: 20220721
  Serious: Yes (Hospitalization)
  Sender: FDA-Public Use
  Company Number: None

PATIENT
  Age: 25 Year
  Sex: Female

DRUGS (7)
  1. NIRMATRELVIR\RITONAVIR [Suspect]
     Active Substance: NIRMATRELVIR\RITONAVIR
     Indication: COVID-19
     Dosage: FREQUENCY : TWICE A DAY;?
     Dates: start: 20220513, end: 20220517
  2. tacrolmus 2 mg PO BID [Concomitant]
  3. PREDNISONE [Concomitant]
     Active Substance: PREDNISONE
  4. Lexapro 30mg daily [Concomitant]
  5. Xolair 300mg every 2 weeks (anti IgE) [Concomitant]
  6. Effexor 150mg daily [Concomitant]
  7. Zyrtec 10mg PO BID (additional H1 blockade) [Concomitant]

REACTIONS (5)
  - Diarrhoea [None]
  - Neuropathy peripheral [None]
  - Drug interaction [None]
  - Drug level increased [None]
  - Toxicity to various agents [None]

NARRATIVE: CASE EVENT DATE: 20220518
